FAERS Safety Report 8883944 (Version 2)
Quarter: 2013Q3

REPORT INFORMATION
  Report Type: Spontaneous
  Country: US (occurrence: US)
  Receive Date: 20121102
  Receipt Date: 20130918
  Transmission Date: 20140515
  Serious: Yes (Other)
  Sender: FDA-Public Use
  Company Number: US-PFIZER INC-2012271933

PATIENT
  Age: 70 Year
  Sex: Female

DRUGS (25)
  1. LYRICA [Suspect]
     Indication: NEURALGIA
     Dosage: 75 MG, 2X/DAY
     Route: 048
  2. APIDRA SOLOSTAR [Concomitant]
     Dosage: 15 UNIT THREE TIMES A DAY AS NEEDED
     Route: 058
  3. ASPIRIN [Concomitant]
     Dosage: 81 MG, 1X/DAY
     Route: 048
  4. CALCIUM 600 [Concomitant]
     Dosage: 600 MG, 1X/DAY
     Route: 048
  5. CALCIUM CARBONATE/COLECALCIFEROL [Concomitant]
     Dosage: 600 MG(1,500MG)-400 UNIT
  6. FEXOFENADINE [Concomitant]
     Dosage: 180 MG, ONCE A DAY AS NEEDED
     Route: 048
  7. LANTUS [Concomitant]
     Indication: DIABETES MELLITUS
     Dosage: 42 IU, 1X/DAY
     Route: 058
  8. LANTUS [Concomitant]
     Dosage: 30 IU, 1X/DAY (1 SHOT A DAY, (NIGHT))
  9. MILK OF MAGNESIA [Concomitant]
     Dosage: 30 ML, AS NEEDED
     Route: 048
  10. MULTI-DAY [Concomitant]
     Dosage: 1 DF, 1X/DAY
     Route: 048
  11. PAXIL CR [Concomitant]
     Indication: ANXIETY
     Dosage: 25 MG, 1X/DAY (1 PILL A DAY (MORNING))
     Route: 048
  12. PROTONIX [Concomitant]
     Dosage: 40 MG, 2X/DAY
     Route: 048
  13. ULTRAM [Concomitant]
     Indication: PAIN
     Dosage: 1-2 TABLET EVERY SIX HOURS AS NEEDED
  14. ULTRAM [Concomitant]
     Dosage: 100 MG, AS NEEDED (50 MGS EACH PILL, 2 PILLS EVERY 4 HOUR AS NEEDED)
  15. VESICARE [Concomitant]
     Indication: BLADDER DISORDER
     Dosage: 10 MG, 1X/DAY (1 PILLS A DAY (MORNING))
     Route: 048
  16. VICTOZA [Concomitant]
     Indication: DIABETES MELLITUS
     Dosage: 1.2 MG, 1X/DAY
     Route: 058
  17. VICTOZA [Concomitant]
     Dosage: 0.6 IU, 1X/DAY (1 SHOT A DAY (MORNING))
  18. ZETIA [Concomitant]
     Dosage: 10 MG, 1X/DAY
     Route: 048
  19. BABY ASPIRIN [Concomitant]
     Dosage: 81 MG, 1X/DAY (1 PILL A DAY, NIGHT)
  20. CALCIUM / VITAMIN D [Concomitant]
     Indication: BONE DISORDER
     Dosage: 2000 MG, 1X/DAY (CALCIUM 1200 MGS + 800 FROM VIT D A DAY)
  21. FEXOFENADINE HYDROCHLORIDE [Concomitant]
     Indication: HYPERSENSITIVITY
     Dosage: 180 MG, 1X/DAY (1 PILL A DAY, WHEN NEEDED)
  22. NOVOLOG [Concomitant]
     Indication: DIABETES MELLITUS
     Dosage: 3 DF, 1X/DAY (3 SHOTS A DAY (IF NEEDED) BEFORE MEDS)
  23. OMEPRAZOLE [Concomitant]
     Indication: GASTROOESOPHAGEAL REFLUX DISEASE
     Dosage: 20 MG, 1X/DAY (1 PILL A DAY (MORNING))
  24. VITAMIN D [Concomitant]
     Indication: BONE DISORDER
     Dosage: 2 PILLS (MORNING) 800 MGS, 1 PILL (NIGHT) 400 MGS
  25. STOOL SOFTENER [Concomitant]
     Dosage: 1 DF, 1X/DAY (1 PILL A DAY (NIGHT))

REACTIONS (2)
  - Arthropathy [Unknown]
  - Eye disorder [Unknown]
